FAERS Safety Report 5485475-1 (Version None)
Quarter: 2007Q4

REPORT INFORMATION
  Report Type: 
  Country: None (occurrence: None)
  Receive Date: 20071011
  Receipt Date: 20070927
  Transmission Date: 20080405
  Serious: Yes (Other)
  Sender: FDA-Public Use
  Company Number: RENA-12287

PATIENT
  Age: 51 Year
  Sex: Male

DRUGS (12)
  1. RENAGEL [Suspect]
     Indication: RENAL FAILURE CHRONIC
     Dosage: 0.8 G TID PO
     Route: 048
     Dates: start: 20061016
  2. RENAGEL [Suspect]
     Indication: RENAL FAILURE CHRONIC
     Dosage: 1.6 G TID PO
     Route: 048
     Dates: start: 20061214
  3. RENAGEL [Suspect]
     Indication: RENAL FAILURE CHRONIC
     Dosage: 2.4 G TID PO
     Route: 048
     Dates: start: 20070125, end: 20070314
  4. NORVASC [Concomitant]
  5. IRON [Concomitant]
  6. CALTRATE [Concomitant]
  7. LIPITOR [Concomitant]
  8. FRUSEMIDE [Concomitant]
  9. SPIROLACTONE [Concomitant]
  10. FOLATE [Concomitant]
  11. TEMAZEPAM [Concomitant]
  12. EPREX [Concomitant]

REACTIONS (7)
  - CONDITION AGGRAVATED [None]
  - CONSTIPATION [None]
  - DRUG INEFFECTIVE [None]
  - DRUG INTERACTION [None]
  - HYPERTENSION [None]
  - NEPHROGENIC ANAEMIA [None]
  - NO THERAPEUTIC RESPONSE [None]
